FAERS Safety Report 11883500 (Version 9)
Quarter: 2019Q3

REPORT INFORMATION
  Report Type: Report from Study
  Country: CA (occurrence: CA)
  Receive Date: 20151231
  Receipt Date: 20190725
  Transmission Date: 20191004
  Serious: Yes (Death, Other)
  Sender: FDA-Public Use
  Company Number: PHHY2015CA103432

PATIENT
  Sex: Female

DRUGS (6)
  1. EXJADE [Suspect]
     Active Substance: DEFERASIROX
     Dosage: 1250 MG, QD
     Route: 048
  2. EXJADE [Suspect]
     Active Substance: DEFERASIROX
     Dosage: 1000 MG, QD
     Route: 048
  3. EXJADE [Suspect]
     Active Substance: DEFERASIROX
     Indication: ANAEMIA
     Dosage: 3 DF OF 250 MG, QD (750 MG)
     Route: 048
  4. EXJADE [Suspect]
     Active Substance: DEFERASIROX
     Dosage: 3 DF OF 250 MG, QD (750 MG)
     Route: 048
     Dates: start: 20160319
  5. EXJADE [Suspect]
     Active Substance: DEFERASIROX
     Dosage: 1500 MG, QD
     Route: 048
     Dates: end: 20170922
  6. EXJADE [Suspect]
     Active Substance: DEFERASIROX
     Indication: MYELODYSPLASTIC SYNDROME
     Dosage: 500 MG, BID
     Route: 048
     Dates: start: 20130905

REACTIONS (9)
  - Eye haemorrhage [Unknown]
  - Faeces discoloured [Unknown]
  - Dry throat [Unknown]
  - Dry mouth [Unknown]
  - Haematochezia [Unknown]
  - Haemoglobin increased [Unknown]
  - Somnolence [Unknown]
  - Inappropriate schedule of product administration [Unknown]
  - Death [Fatal]
